FAERS Safety Report 4863944-2 (Version None)
Quarter: 2005Q4

REPORT INFORMATION
  Report Type: 
  Country: None (occurrence: None)
  Receive Date: 20051219
  Receipt Date: 20051219
  Transmission Date: 20060501
  Serious: No
  Sender: FDA-Public Use
  Company Number: None

PATIENT
  Age: 46 Year
  Sex: Male
  Weight: 108.8633 kg

DRUGS (2)
  1. SEROQUEL [Suspect]
     Indication: SCHIZOAFFECTIVE DISORDER
     Dosage: 300MG  ONCE A DAY PO
     Route: 048
     Dates: start: 20011015, end: 20030822
  2. GEODON [Suspect]
     Dosage: 20MG  TWICE PER DAY PO
     Route: 048
     Dates: start: 20011015, end: 20030822

REACTIONS (2)
  - DIABETES MELLITUS [None]
  - HEPATIC STEATOSIS [None]
